FAERS Safety Report 21566809 (Version 1)
Quarter: 2022Q4

REPORT INFORMATION
  Report Type: Spontaneous
  Country: US (occurrence: None)
  Receive Date: 20221107
  Receipt Date: 20221107
  Transmission Date: 20230112
  Serious: Yes (Hospitalization)
  Sender: FDA-Public Use
  Company Number: None

PATIENT
  Age: 72 Year
  Sex: Female
  Weight: 96.75 kg

DRUGS (20)
  1. MUPIROCIN [Suspect]
     Active Substance: MUPIROCIN
     Indication: Wound
     Dosage: FREQUENCY : DAILY;?
     Route: 061
     Dates: start: 20221008, end: 20221028
  2. DEVICE [Concomitant]
     Active Substance: DEVICE
  3. Amodafnil [Concomitant]
  4. MAGNESIUM [Concomitant]
     Active Substance: MAGNESIUM
  5. ALA [Concomitant]
  6. EPA/DHA [Concomitant]
  7. DIETARY SUPPLEMENT\RESVERATROL [Concomitant]
     Active Substance: DIETARY SUPPLEMENT\RESVERATROL
  8. BENFOTIAMINE [Concomitant]
     Active Substance: BENFOTIAMINE
  9. GARLIC [Concomitant]
     Active Substance: GARLIC
  10. VITAMIN D3 [Concomitant]
     Active Substance: CHOLECALCIFEROL
  11. ZINC [Concomitant]
     Active Substance: ZINC
  12. QUERCETIN [Concomitant]
     Active Substance: QUERCETIN
  13. COQ [Concomitant]
  14. HORSE CHESTNUT [Concomitant]
     Active Substance: HORSE CHESTNUT
  15. Tart Cherry extract [Concomitant]
  16. HERBALS\TURMERIC [Concomitant]
     Active Substance: HERBALS\TURMERIC
  17. DIETARY SUPPLEMENT\GRAPE SEED EXTRACT [Concomitant]
     Active Substance: DIETARY SUPPLEMENT\GRAPE SEED EXTRACT
  18. CALCIUM [Concomitant]
     Active Substance: CALCIUM
  19. TAURINE [Concomitant]
     Active Substance: TAURINE
  20. NAC [Concomitant]

REACTIONS (5)
  - Fatigue [None]
  - Chest discomfort [None]
  - Blood pressure increased [None]
  - Diarrhoea [None]
  - Joint swelling [None]

NARRATIVE: CASE EVENT DATE: 20221009
